FAERS Safety Report 22162820 (Version 1)
Quarter: 2023Q1

REPORT INFORMATION
  Report Type: Spontaneous
  Country: None (occurrence: US)
  Receive Date: 20230331
  Receipt Date: 20230331
  Transmission Date: 20230418
  Serious: Yes (Other)
  Sender: FDA-Public Use
  Company Number: US-Imprimis NJOF, LLC-2139787

PATIENT

DRUGS (1)
  1. DEXMOXIKETOR PF [Suspect]
     Active Substance: DEXAMETHASONE SODIUM PHOSPHATE\KETOROLAC TROMETHAMINE\MOXIFLOXACIN HYDROCHLORIDE MONOHYDRATE
     Route: 047

REACTIONS (1)
  - Intraocular pressure increased [Unknown]
